FAERS Safety Report 9916088 (Version 3)
Quarter: 2014Q1

REPORT INFORMATION
  Report Type: Spontaneous
  Country: US (occurrence: US)
  Receive Date: 20140221
  Receipt Date: 20140331
  Transmission Date: 20141002
  Serious: No
  Sender: FDA-Public Use
  Company Number: US-009507513-1402USA009486

PATIENT
  Sex: Male
  Weight: 69.39 kg

DRUGS (1)
  1. NASONEX [Suspect]
     Indication: RHINITIS ALLERGIC
     Dosage: AEROSOL, 50 MICROGRAM, JUST ABOUT EVERY NIGHT DURING FALL AND SPRINGTIME; 2 SPRAYS AT BEDTIME
     Route: 045

REACTIONS (3)
  - Drug dose omission [Unknown]
  - Product quality issue [Unknown]
  - No adverse event [Unknown]
